FAERS Safety Report 20483956 (Version 1)
Quarter: 2022Q1

REPORT INFORMATION
  Report Type: Spontaneous
  Country: US (occurrence: None)
  Receive Date: 20220216
  Receipt Date: 20220216
  Transmission Date: 20220424
  Serious: Yes (Other)
  Sender: FDA-Public Use
  Company Number: None

PATIENT
  Age: 52 Year
  Sex: Female
  Weight: 56.7 kg

DRUGS (1)
  1. GAMMAPLEX [Suspect]
     Active Substance: HUMAN IMMUNOGLOBULIN G
     Indication: Immunology test abnormal
     Dosage: OTHER FREQUENCY : WEEKLY;?
     Route: 042

REACTIONS (4)
  - Headache [None]
  - Pain in extremity [None]
  - Nasal discomfort [None]
  - Infusion related reaction [None]

NARRATIVE: CASE EVENT DATE: 20220215
